FAERS Safety Report 25634806 (Version 1)
Quarter: 2025Q3

REPORT INFORMATION
  Report Type: Spontaneous
  Country: US (occurrence: US)
  Receive Date: 20250801
  Receipt Date: 20250801
  Transmission Date: 20251021
  Serious: Yes (Hospitalization)
  Sender: MYLAN
  Company Number: US-MYLANLABS-2025M1064473

PATIENT
  Age: 84 Year
  Sex: Female

DRUGS (4)
  1. KETOROLAC [Suspect]
     Active Substance: KETOROLAC TROMETHAMINE
     Indication: Fracture pain
  2. KETOROLAC [Suspect]
     Active Substance: KETOROLAC TROMETHAMINE
     Indication: Compression fracture
     Route: 030
  3. KETOROLAC [Suspect]
     Active Substance: KETOROLAC TROMETHAMINE
     Route: 030
  4. KETOROLAC [Suspect]
     Active Substance: KETOROLAC TROMETHAMINE

REACTIONS (1)
  - Drug ineffective [Unknown]
